FAERS Safety Report 25640091 (Version 1)
Quarter: 2025Q3

REPORT INFORMATION
  Report Type: Spontaneous
  Country: GB (occurrence: GB)
  Receive Date: 20250804
  Receipt Date: 20250804
  Transmission Date: 20251021
  Serious: Yes (Other)
  Sender: TORRENT PHARMA INC.
  Company Number: None

PATIENT

DRUGS (1)
  1. ROSUVASTATIN [Suspect]
     Active Substance: ROSUVASTATIN
     Indication: Blood cholesterol
     Route: 065
     Dates: end: 20250722

REACTIONS (6)
  - Rash [Recovering/Resolving]
  - Acrochordon [Recovered/Resolved]
  - Vision blurred [Recovered/Resolved]
  - Diarrhoea [Recovered/Resolved]
  - Pain in extremity [Recovering/Resolving]
  - Sleep disorder [Recovering/Resolving]
